FAERS Safety Report 7207808-8 (Version None)
Quarter: 2011Q1

REPORT INFORMATION
  Report Type: 
  Country: None (occurrence: None)
  Receive Date: 20110104
  Receipt Date: 20101222
  Transmission Date: 20110831
  Serious: Yes (Hospitalization)
  Sender: FDA-Public Use
  Company Number: US-ASTRAZENECA-2010SE60545

PATIENT
  Age: 46 Year
  Sex: Female
  Weight: 77.1 kg

DRUGS (5)
  1. SYMBICORT [Suspect]
     Indication: ASTHMA
     Dosage: 160/4.5 MCG, 10.2 GM 2 PUFFS BID PRN
     Route: 055
     Dates: start: 20080101
  2. FLUTICASONE PROPIONATE [Concomitant]
  3. ESTROGEN [Concomitant]
  4. HYDROCHLOROTHIAZIDE [Concomitant]
  5. PULMICORT FLEXHALER [Concomitant]
     Indication: ASTHMA

REACTIONS (2)
  - HYSTERECTOMY [None]
  - INAPPROPRIATE SCHEDULE OF DRUG ADMINISTRATION [None]
